FAERS Safety Report 7992805-5 (Version None)
Quarter: 2011Q4

REPORT INFORMATION
  Report Type: 
  Country: None (occurrence: None)
  Receive Date: 20111219
  Receipt Date: 20110304
  Transmission Date: 20120403
  Serious: No
  Sender: FDA-Public Use
  Company Number: US-ASTRAZENECA-2011SE08865

PATIENT
  Age: 63 Year
  Sex: Female
  Weight: 57.2 kg

DRUGS (3)
  1. LEVOXYL [Concomitant]
     Indication: THYROID DISORDER
  2. CRESTOR [Suspect]
     Indication: BLOOD CHOLESTEROL INCREASED
     Route: 048
     Dates: start: 20110101
  3. LACTACE [Concomitant]

REACTIONS (3)
  - DIARRHOEA [None]
  - ABDOMINAL PAIN [None]
  - ABDOMINAL DISCOMFORT [None]
